FAERS Safety Report 17052709 (Version 1)
Quarter: 2019Q4

REPORT INFORMATION
  Report Type: Spontaneous
  Country: US (occurrence: US)
  Receive Date: 20191120
  Receipt Date: 20191120
  Transmission Date: 20200122
  Serious: Yes (Hospitalization)
  Sender: FDA-Public Use
  Company Number: US-GW PHARMA-201911USGW4091

PATIENT

DRUGS (4)
  1. EPIDIOLEX [Suspect]
     Active Substance: CANNABIDIOL
     Indication: LENNOX-GASTAUT SYNDROME
     Dosage: 9.6MG/KG, 360 MILLIGRAM, BID
     Route: 048
     Dates: start: 201908
  2. LITHIUM. [Interacting]
     Active Substance: LITHIUM
     Indication: PRODUCT USED FOR UNKNOWN INDICATION
     Dosage: 1500 MILLIGRAM, QD (600MG AM, 300MG PM, 600MG QHS)
     Route: 065
     Dates: end: 2019
  3. CLOBAZAM. [Concomitant]
     Active Substance: CLOBAZAM
     Indication: PRODUCT USED FOR UNKNOWN INDICATION
     Dosage: 20 MILLIGRAM, BID
     Route: 065
     Dates: end: 2019
  4. CLOBAZAM. [Concomitant]
     Active Substance: CLOBAZAM
     Dosage: 10 MILLIGRAM, BID
     Route: 065
     Dates: start: 2019

REACTIONS (3)
  - Toxicity to various agents [Recovering/Resolving]
  - Lethargy [Recovering/Resolving]
  - Drug interaction [Recovering/Resolving]

NARRATIVE: CASE EVENT DATE: 2019
